FAERS Safety Report 21088688 (Version 1)
Quarter: 2022Q3

REPORT INFORMATION
  Report Type: Spontaneous
  Country: US (occurrence: US)
  Receive Date: 20220715
  Receipt Date: 20220715
  Transmission Date: 20221027
  Serious: No
  Sender: FDA-Public Use
  Company Number: US-PFIZER INC-202200954274

PATIENT
  Age: 26 Year
  Sex: Female
  Weight: 49.887 kg

DRUGS (3)
  1. CABERGOLINE [Suspect]
     Active Substance: CABERGOLINE
     Dosage: 0.5 MG, WEEKLY (ONCE A WEEK)
  2. HIGH DENSITY POLYETHYLENE [Concomitant]
     Active Substance: HIGH DENSITY POLYETHYLENE
     Indication: Constipation prophylaxis
     Dosage: UNK
  3. MOMETASONE FUROATE [Concomitant]
     Active Substance: MOMETASONE FUROATE
     Dosage: UNK

REACTIONS (1)
  - Constipation [Unknown]
